FAERS Safety Report 13587933 (Version 2)
Quarter: 2017Q2

REPORT INFORMATION
  Report Type: Spontaneous
  Country: IT (occurrence: IT)
  Receive Date: 20170527
  Receipt Date: 20170606
  Transmission Date: 20170830
  Serious: Yes (Other)
  Sender: FDA-Public Use
  Company Number: IT-ACCORD-051728

PATIENT
  Age: 42 Year
  Sex: Female
  Weight: 65 kg

DRUGS (2)
  1. TYVERB [Interacting]
     Active Substance: LAPATINIB
     Indication: BREAST CANCER
     Dosage: STRENGTH: 250 MG
     Dates: start: 20161220, end: 20170313
  2. CAPECITABINE ACCORD [Suspect]
     Active Substance: CAPECITABINE
     Indication: BREAST CANCER
     Dosage: STRENGTH: 150 MG
     Route: 048
     Dates: start: 20161220, end: 20170313

REACTIONS (4)
  - Drug interaction [Unknown]
  - Erythema [Recovered/Resolved]
  - Skin toxicity [Recovered/Resolved]
  - Pain [Recovered/Resolved]

NARRATIVE: CASE EVENT DATE: 20170313
